FAERS Safety Report 7966923-1 (Version None)
Quarter: 2011Q4

REPORT INFORMATION
  Report Type: 
  Country: None (occurrence: None)
  Receive Date: 20111209
  Receipt Date: 20111206
  Transmission Date: 20120403
  Serious: Yes (Other)
  Sender: FDA-Public Use
  Company Number: JP-PFIZER INC-2011297889

PATIENT
  Age: 53 Year
  Sex: Male

DRUGS (2)
  1. TOLTERODINE TARTRATE [Suspect]
     Dosage: 4 MG, UNK
     Route: 048
     Dates: start: 20111126, end: 20111201
  2. TAMSULOSIN HCL [Suspect]
     Dosage: 0.2 MG, UNK
     Route: 048
     Dates: start: 20111126

REACTIONS (4)
  - FALL [None]
  - INTRAOCULAR PRESSURE INCREASED [None]
  - VISION BLURRED [None]
  - MUSCULAR WEAKNESS [None]
